FAERS Safety Report 19036410 (Version 1)
Quarter: 2021Q1

REPORT INFORMATION
  Report Type: Spontaneous
  Country: US (occurrence: US)
  Receive Date: 20210319
  Receipt Date: 20210319
  Transmission Date: 20210420
  Serious: Yes (Other)
  Sender: FDA-Public Use
  Company Number: None

PATIENT
  Age: 39 Year
  Sex: Female

DRUGS (4)
  1. BOTOX [Suspect]
     Active Substance: ONABOTULINUMTOXINA
     Indication: VITAMIN D DEFICIENCY
     Dosage: ?          OTHER FREQUENCY:EVERY 11 WEEKS;?
     Route: 058
     Dates: start: 20200913
  2. BOTOX [Suspect]
     Active Substance: ONABOTULINUMTOXINA
     Indication: TYPE 2 DIABETES MELLITUS
     Dosage: ?          OTHER FREQUENCY:EVERY 11 WEEKS;?
     Route: 058
     Dates: start: 20200913
  3. TIZANIDINE. [Concomitant]
     Active Substance: TIZANIDINE
  4. RIZATRIPTAN. [Concomitant]
     Active Substance: RIZATRIPTAN

REACTIONS (1)
  - Hospitalisation [None]

NARRATIVE: CASE EVENT DATE: 20210318
